FAERS Safety Report 6749509-6 (Version None)
Quarter: 2010Q2

REPORT INFORMATION
  Report Type: 
  Country: None (occurrence: None)
  Receive Date: 20100601
  Receipt Date: 20100519
  Transmission Date: 20101027
  Serious: Yes (Disabling)
  Sender: FDA-Public Use
  Company Number: GB-SANOFI-AVENTIS-2010SA029014

PATIENT
  Age: 78 Year
  Sex: Male

DRUGS (3)
  1. ENOXAPARIN SODIUM [Suspect]
     Indication: ANTICOAGULANT THERAPY
     Route: 058
     Dates: start: 20100419, end: 20100428
  2. ENOXAPARIN SODIUM [Suspect]
     Route: 058
     Dates: start: 20100501
  3. SIMVASTATIN [Concomitant]

REACTIONS (1)
  - SCOTOMA [None]
